FAERS Safety Report 24855345 (Version 1)
Quarter: 2025Q1

REPORT INFORMATION
  Report Type: Spontaneous
  Country: US (occurrence: US)
  Receive Date: 20250117
  Receipt Date: 20250117
  Transmission Date: 20250408
  Serious: Yes (Other)
  Sender: AMGEN
  Company Number: US-AMGEN-USASP2025008669

PATIENT
  Age: 73 Year
  Sex: Male

DRUGS (3)
  1. PREDNISONE [Suspect]
     Active Substance: PREDNISONE
     Indication: Dermatitis
     Route: 065
  2. TRIAMCINOLONE [Concomitant]
     Active Substance: TRIAMCINOLONE
     Indication: Dermatitis
     Route: 065
  3. TIVOZANIB [Concomitant]
     Active Substance: TIVOZANIB
     Indication: Dermatitis
     Route: 065

REACTIONS (1)
  - Dermatitis bullous [Unknown]
